FAERS Safety Report 19937731 (Version 1)
Quarter: 2021Q4

REPORT INFORMATION
  Report Type: Spontaneous
  Country: ES (occurrence: ES)
  Receive Date: 20211011
  Receipt Date: 20211011
  Transmission Date: 20220303
  Serious: Yes (Hospitalization, Other)
  Sender: FDA-Public Use
  Company Number: ES-AEMPS-483452

PATIENT
  Age: 79 Year
  Sex: Male

DRUGS (3)
  1. FUROSEMIDE [Interacting]
     Active Substance: FUROSEMIDE
     Indication: Cardiac failure
     Dosage: 80 MILLIGRAM, DAILY
     Route: 048
     Dates: start: 20151213, end: 20190131
  2. FUROSEMIDE [Interacting]
     Active Substance: FUROSEMIDE
     Dosage: 120 MILLIGRAM, DAILY, 2-1-0
     Route: 048
     Dates: start: 20190201, end: 20190322
  3. SPIRONOLACTONE [Interacting]
     Active Substance: SPIRONOLACTONE
     Indication: Cardiac failure
     Dosage: 100 MILLIGRAM, DAILY
     Route: 001
     Dates: start: 20171114, end: 20190322

REACTIONS (1)
  - Acute kidney injury [Recovered/Resolved]

NARRATIVE: CASE EVENT DATE: 20190322
